FAERS Safety Report 8131603-9 (Version None)
Quarter: 2012Q1

REPORT INFORMATION
  Report Type: 
  Country: None (occurrence: None)
  Receive Date: 20120213
  Receipt Date: 20120210
  Transmission Date: 20120608
  Serious: Yes (Life-Threatening)
  Sender: FDA-Public Use
  Company Number: GB-JNJFOC-20120205405

PATIENT
  Age: 2 Year
  Sex: Male
  Weight: 14.45 kg

DRUGS (2)
  1. MEBENDAZOLE [Suspect]
     Route: 048
     Dates: start: 20120130, end: 20120130
  2. MEBENDAZOLE [Suspect]
     Indication: ENTEROBIASIS
     Route: 048
     Dates: start: 20120101, end: 20120101

REACTIONS (1)
  - ANAPHYLACTIC REACTION [None]
